FAERS Safety Report 24370322 (Version 1)
Quarter: 2024Q3

REPORT INFORMATION
  Report Type: Spontaneous
  Country: IT (occurrence: IT)
  Receive Date: 20240927
  Receipt Date: 20240927
  Transmission Date: 20241016
  Serious: Yes (Death, Hospitalization, Other)
  Sender: GLAXOSMITHKLINE
  Company Number: IT-GLAXOSMITHKLINE-IT2024EME118043

PATIENT

DRUGS (1)
  1. NIRAPARIB [Suspect]
     Active Substance: NIRAPARIB
     Indication: Product used for unknown indication
     Dosage: UNK
     Dates: start: 20240823

REACTIONS (4)
  - Death [Fatal]
  - Thrombocytopenia [Unknown]
  - Haemoglobin decreased [Unknown]
  - Neutropenia [Unknown]
